FAERS Safety Report 20994951 (Version 1)
Quarter: 2022Q2

REPORT INFORMATION
  Report Type: Spontaneous
  Country: US (occurrence: US)
  Receive Date: 20220622
  Receipt Date: 20220622
  Transmission Date: 20220721
  Serious: Yes (Hospitalization, Other)
  Sender: FDA-Public Use
  Company Number: US-OTSUKA-2022_029796

PATIENT
  Age: 33 Year
  Sex: Male
  Weight: 81.63 kg

DRUGS (4)
  1. REXULTI [Suspect]
     Active Substance: BREXPIPRAZOLE
     Indication: Bipolar I disorder
     Dosage: 1 MG IN THE MORNING BY MOUTH
     Route: 048
     Dates: start: 20190329, end: 20190406
  2. BUSPAR [Concomitant]
     Active Substance: BUSPIRONE HYDROCHLORIDE
     Indication: Product used for unknown indication
     Dosage: 10 MG
     Route: 065
  3. GABAPENTIN [Concomitant]
     Active Substance: GABAPENTIN
     Indication: Product used for unknown indication
     Dosage: 600 MG
     Route: 065
  4. LITHIUM [Concomitant]
     Active Substance: LITHIUM
     Indication: Product used for unknown indication
     Dosage: 450 MG
     Route: 065

REACTIONS (14)
  - Psychiatric decompensation [Recovered/Resolved]
  - Depression [Recovered/Resolved]
  - Hunger [Recovered/Resolved]
  - Hypersomnia [Recovered/Resolved]
  - Tardive dyskinesia [Recovered/Resolved]
  - Fatigue [Recovered/Resolved]
  - Paranoia [Unknown]
  - Delusion [Unknown]
  - Defaecation disorder [Unknown]
  - Abnormal behaviour [Unknown]
  - Illness [Unknown]
  - Weight increased [Unknown]
  - Refusal of treatment by patient [Unknown]
  - Treatment noncompliance [Unknown]

NARRATIVE: CASE EVENT DATE: 20190329
